FAERS Safety Report 9839506 (Version 4)
Quarter: 2014Q2

REPORT INFORMATION
  Report Type: Spontaneous
  Country: DE (occurrence: DE)
  Receive Date: 20140124
  Receipt Date: 20140404
  Transmission Date: 20141212
  Serious: Yes (Death, Hospitalization, Other)
  Sender: FDA-Public Use
  Company Number: DE-AMGEN-DEUSP2014004344

PATIENT
  Age: 74 Year
  Sex: Male
  Weight: 80 kg

DRUGS (6)
  1. XGEVA [Suspect]
     Indication: METASTASES TO BONE
     Dosage: 120 MG, Q4WK
     Route: 058
     Dates: start: 20120521, end: 20131115
  2. ENANTONE                           /00726901/ [Concomitant]
     Dosage: UNK UNK, Q4WK
     Route: 058
     Dates: start: 20110913
  3. FLUTAMIDE [Concomitant]
     Dosage: UNK UNK, TID
     Route: 048
     Dates: start: 20110906, end: 20110910
  4. CALCIUM 600+VITAMIN D3 400 [Concomitant]
     Dosage: UNK UNK, QD
     Route: 048
     Dates: start: 20120525
  5. ZYTIGA [Concomitant]
     Dosage: 4 DF, QD
     Route: 048
     Dates: start: 20130617
  6. PREDNISOLON                        /00016201/ [Concomitant]
     Dosage: 20 MG, UNK
     Dates: start: 20130617

REACTIONS (4)
  - Death [Fatal]
  - Osteonecrosis of jaw [Unknown]
  - Tooth loss [Unknown]
  - Toothache [Unknown]
